FAERS Safety Report 4975704-2 (Version None)
Quarter: 2006Q2

REPORT INFORMATION
  Report Type: 
  Country: None (occurrence: None)
  Receive Date: 20060418
  Receipt Date: 20051208
  Transmission Date: 20061013
  Serious: Yes (Other)
  Sender: FDA-Public Use
  Company Number: US-NOVOPROD-249180

PATIENT
  Age: 3 Day
  Sex: Male
  Weight: 2 kg

DRUGS (7)
  1. NOVOSEVEN [Suspect]
     Indication: HAEMOCHROMATOSIS
     Dosage: 200 UG EVERY 2 HOURS X 3 DOSES TOTAL VIA UVC
     Route: 042
     Dates: start: 20051206
  2. NOVOSEVEN [Suspect]
     Route: 042
  3. FRESH FROZEN PLASMA [Concomitant]
     Indication: PULMONARY HAEMORRHAGE
     Dosage: UNKNOWN
     Dates: start: 20051128
  4. PLATELETS [Concomitant]
     Indication: PULMONARY HAEMORRHAGE
     Dosage: UNKNOWN
     Dates: start: 20051128
  5. ANTIBIOTICS [Concomitant]
     Indication: NOSOCOMIAL INFECTION
     Dosage: UNKNOWN
     Dates: start: 20051128
  6. KRIOPRECIPITAT [Concomitant]
     Indication: PULMONARY HAEMORRHAGE
     Dates: start: 20051202
  7. BLOOD AND RELATED PRODUCTS [Concomitant]
     Indication: PULMONARY HAEMORRHAGE
     Dates: start: 20051128

REACTIONS (3)
  - BLOOD BILIRUBIN INCREASED [None]
  - BLOOD FIBRINOGEN DECREASED [None]
  - PORTAL VEIN THROMBOSIS [None]
